FAERS Safety Report 20291072 (Version 1)
Quarter: 2022Q1

REPORT INFORMATION
  Report Type: Report from Study
  Country: TW (occurrence: TW)
  Receive Date: 20220104
  Receipt Date: 20220104
  Transmission Date: 20220423
  Serious: Yes (Hospitalization)
  Sender: FDA-Public Use
  Company Number: TW-ABBVIE-19P-153-2712752-00

PATIENT
  Age: 31 Year
  Sex: Female
  Weight: 52.1 kg

DRUGS (21)
  1. UPADACITINIB [Suspect]
     Active Substance: UPADACITINIB
     Indication: Rheumatoid arthritis
     Route: 048
     Dates: start: 20170504, end: 20180821
  2. UPADACITINIB [Suspect]
     Active Substance: UPADACITINIB
     Indication: Rheumatoid arthritis
     Route: 048
     Dates: start: 20180822, end: 20190318
  3. UPADACITINIB [Suspect]
     Active Substance: UPADACITINIB
     Route: 048
     Dates: start: 20190411
  4. PREDINISOLONE [Concomitant]
     Indication: Rheumatoid arthritis
     Route: 048
     Dates: start: 20141204, end: 20180416
  5. PREDINISOLONE [Concomitant]
     Dosage: FREQUENCY: TOOK ONE TABLET ON ODD DAYS, AND TOOK TWO TABLETS ON EVEN DAYS
     Route: 048
     Dates: start: 20180417, end: 20181219
  6. PREDINISOLONE [Concomitant]
     Route: 048
     Dates: start: 20181220
  7. ARCOXIA [Concomitant]
     Active Substance: ETORICOXIB
     Indication: Rheumatoid arthritis
     Route: 048
     Dates: start: 20141009, end: 20161109
  8. ARCOXIA [Concomitant]
     Active Substance: ETORICOXIB
     Route: 048
     Dates: start: 20161110, end: 20171101
  9. ARCOXIA [Concomitant]
     Active Substance: ETORICOXIB
     Route: 048
     Dates: start: 20171102
  10. METHOTREXATE [Concomitant]
     Active Substance: METHOTREXATE
     Indication: Rheumatoid arthritis
     Route: 048
     Dates: start: 20141030, end: 20141126
  11. METHOTREXATE [Concomitant]
     Active Substance: METHOTREXATE
     Route: 048
     Dates: start: 20141127, end: 20141224
  12. METHOTREXATE [Concomitant]
     Active Substance: METHOTREXATE
     Route: 048
     Dates: start: 20141225, end: 20150204
  13. METHOTREXATE [Concomitant]
     Active Substance: METHOTREXATE
     Route: 048
     Dates: start: 20150205, end: 20150819
  14. METHOTREXATE [Concomitant]
     Active Substance: METHOTREXATE
     Route: 048
     Dates: start: 20150820, end: 20151111
  15. METHOTREXATE [Concomitant]
     Active Substance: METHOTREXATE
     Route: 048
     Dates: start: 20151126, end: 20161012
  16. METHOTREXATE [Concomitant]
     Active Substance: METHOTREXATE
     Route: 048
     Dates: start: 20161013, end: 20161207
  17. METHOTREXATE [Concomitant]
     Active Substance: METHOTREXATE
     Route: 048
     Dates: start: 20161208, end: 20170104
  18. METHOTREXATE [Concomitant]
     Active Substance: METHOTREXATE
     Route: 048
     Dates: start: 20170105, end: 20170426
  19. METHOTREXATE [Concomitant]
     Active Substance: METHOTREXATE
     Route: 048
     Dates: start: 20170427, end: 20190319
  20. RANITIDINE [Concomitant]
     Active Substance: RANITIDINE
     Indication: Gastrointestinal disorder prophylaxis
     Route: 048
     Dates: start: 20140414
  21. FOLIC ACID [Concomitant]
     Active Substance: FOLIC ACID
     Indication: Vitamin supplementation
     Route: 048
     Dates: start: 20170330

REACTIONS (1)
  - Large intestine infection [Recovered/Resolved]

NARRATIVE: CASE EVENT DATE: 20190318
